FAERS Safety Report 4806033-5 (Version None)
Quarter: 2005Q4

REPORT INFORMATION
  Report Type: 
  Country: None (occurrence: None)
  Receive Date: 20051019
  Receipt Date: 20050930
  Transmission Date: 20060501
  Serious: Yes (Hospitalization)
  Sender: FDA-Public Use
  Company Number: US_0506119635

PATIENT
  Age: 72 Year
  Sex: Female
  Weight: 89 kg

DRUGS (17)
  1. CYMBALTA [Suspect]
     Dates: start: 20050520, end: 20050525
  2. PRILOSEC [Concomitant]
  3. LISINOPRIL (LISINOPRIL  /00894001/) [Concomitant]
  4. CADUET [Concomitant]
  5. FUROSEMIDE (FUROSEMIDE  /00032601/) [Concomitant]
  6. GLUCOTROL XL [Concomitant]
  7. AVANDIA [Concomitant]
  8. HYDROCODONE W/APAP [Concomitant]
  9. LEXAPRO [Concomitant]
  10. CLARITIN [Concomitant]
  11. CALCIUM W/VITAMIN D NOS [Concomitant]
  12. MULTIVITAMINS NOS (MULTIVITAMNS NOS) [Concomitant]
  13. LANTUS [Concomitant]
  14. XALATAN [Concomitant]
  15. DETROL LA [Concomitant]
  16. AREDIA [Concomitant]
  17. LEVOXILY (LEVOTHYROXINE SODIUM) [Concomitant]

REACTIONS (5)
  - ABDOMINAL PAIN UPPER [None]
  - ERYTHEMA [None]
  - MUSCLE SPASMS [None]
  - RECTAL HAEMORRHAGE [None]
  - THINKING ABNORMAL [None]
